FAERS Safety Report 7644302-4 (Version None)
Quarter: 2011Q3

REPORT INFORMATION
  Report Type: 
  Country: None (occurrence: None)
  Receive Date: 20110729
  Receipt Date: 20110714
  Transmission Date: 20111222
  Serious: Yes (Other)
  Sender: FDA-Public Use
  Company Number: PHHY2011DE64515

PATIENT
  Age: 54 Year
  Sex: Female

DRUGS (5)
  1. ALENDRONATE SODIUM [Suspect]
     Dosage: UNK
     Dates: start: 20030601, end: 20041201
  2. IBANDRONATE SODIUM [Suspect]
     Dosage: UNK
     Dates: start: 20041201, end: 20060901
  3. PAMIDRONATE DISODIUM [Suspect]
     Dosage: UNK
     Route: 040
     Dates: start: 20070101, end: 20100601
  4. CHEMOTHERAPEUTICS [Concomitant]
  5. CORTISONE ACETATE [Concomitant]

REACTIONS (2)
  - OSTEONECROSIS OF JAW [None]
  - ABSCESS JAW [None]
